FAERS Safety Report 19939214 (Version 2)
Quarter: 2022Q1

REPORT INFORMATION
  Report Type: Spontaneous
  Country: GB (occurrence: GB)
  Receive Date: 20211011
  Receipt Date: 20220222
  Transmission Date: 20220423
  Serious: Yes (Death, Life-Threatening, Hospitalization, Other)
  Sender: FDA-Public Use
  Company Number: None

PATIENT
  Age: 66 Year
  Sex: Female

DRUGS (27)
  1. APIXABAN [Suspect]
     Active Substance: APIXABAN
     Indication: Deep vein thrombosis
     Route: 048
     Dates: start: 20200804, end: 20210528
  2. AMLODIPINE [Concomitant]
     Active Substance: AMLODIPINE BESYLATE
     Dosage: TAKE IN THE MORNING
     Dates: start: 20210527, end: 20210603
  3. BENDROFLUMETHIAZIDE [Concomitant]
     Active Substance: BENDROFLUMETHIAZIDE
     Dosage: TAKE IN THE MORNING
     Route: 048
     Dates: start: 20210527, end: 20210603
  4. CYCLIZINE [Concomitant]
     Active Substance: CYCLIZINE
     Dosage: 1 TDS PRN
  5. LEVOTHYROXINE [Concomitant]
     Active Substance: LEVOTHYROXINE
     Dosage: MORNING
     Route: 060
     Dates: start: 20210609
  6. OXYCODONE HYDROCHLORIDE [Concomitant]
     Active Substance: OXYCODONE HYDROCHLORIDE
  7. OXYCODONE HYDROCHLORIDE [Concomitant]
     Active Substance: OXYCODONE HYDROCHLORIDE
     Dosage: 5MG/5ML. FREE 5-10ML QDS PRN
     Route: 048
     Dates: start: 20210526
  8. ACETAMINOPHEN [Concomitant]
     Active Substance: ACETAMINOPHEN
     Route: 048
     Dates: start: 20210526
  9. FLETCHERS PHOSPHATE ENEMA [Concomitant]
     Dosage: 1 MDU, PL 17736/0115, AT NIGHT
     Route: 054
     Dates: start: 20210528
  10. SENNA [Concomitant]
     Active Substance: SENNA LEAF\SENNOSIDES\SENNOSIDES A AND B
     Dosage: AT NIGHT
     Route: 048
     Dates: start: 20210608
  11. DOCUSATE SODIUM [Concomitant]
     Active Substance: DOCUSATE SODIUM
     Dosage: MORNING/BED
     Route: 048
     Dates: start: 20210526, end: 20210608
  12. HYDROXYUREA [Concomitant]
     Active Substance: HYDROXYUREA
     Dosage: MORNING/TEA
     Route: 048
     Dates: start: 20210527
  13. LACRI-LUBE [Concomitant]
     Dosage: AT NIGHT
     Dates: start: 20210603, end: 20210603
  14. CALCIUM CARBONATE\SODIUM ALGINATE\SODIUM BICARBONATE [Concomitant]
     Active Substance: CALCIUM CARBONATE\SODIUM ALGINATE\SODIUM BICARBONATE
     Route: 048
     Dates: start: 20210528, end: 20210528
  15. PIPERACILLIN AND TAZOBACTAM [Concomitant]
     Active Substance: PIPERACILLIN SODIUM\TAZOBACTAM SODIUM
     Dosage: 4G/500MG
     Route: 042
     Dates: start: 20210526, end: 20210527
  16. ONDANSETRON [Concomitant]
     Active Substance: ONDANSETRON
     Dosage: 4MG IN 2ML INJECTION
     Route: 030
     Dates: start: 20210527
  17. GLYCERIN [Concomitant]
     Active Substance: GLYCERIN
     Dosage: AT NIGHT
     Route: 054
     Dates: start: 20210527
  18. SODIUM CHLORIDE [Concomitant]
     Active Substance: SODIUM CHLORIDE
     Dosage: INHALATIONAL
     Dates: start: 20210608
  19. MIDAZOLAM [Concomitant]
     Active Substance: MIDAZOLAM
     Dosage: AS NECESSARY, 5MG/ML
     Route: 058
     Dates: start: 20210616
  20. POLYETHYLENE GLYCOLS [Concomitant]
     Active Substance: POLYETHYLENE GLYCOLS
     Dosage: MORNING/BED
     Route: 048
     Dates: start: 20210527, end: 20210527
  21. LEVOMEPROMAZINE [Concomitant]
     Active Substance: LEVOMEPROMAZINE
     Dosage: AS NECESSARY, 25MG/ML
     Route: 058
     Dates: start: 20210526
  22. HYPROMELLOSES [Concomitant]
     Active Substance: HYPROMELLOSES
     Dosage: AS NECESSARY, BOTH EYES
     Dates: start: 20210615
  23. METOCLOPRAMIDE [Concomitant]
     Active Substance: METOCLOPRAMIDE
     Route: 048
     Dates: start: 20210526, end: 20210527
  24. ONDANSETRON [Concomitant]
     Active Substance: ONDANSETRON
     Route: 048
     Dates: start: 20210527
  25. GLYCOPYRRONIUM [Concomitant]
     Active Substance: GLYCOPYRRONIUM
     Dosage: AS NECESSARY
     Route: 058
     Dates: start: 20210528
  26. LANSOPRAZOLE [Concomitant]
     Active Substance: LANSOPRAZOLE
     Dosage: TAKE IN THE MORNING
     Route: 048
     Dates: start: 20210529
  27. OXYGEN [Concomitant]
     Active Substance: OXYGEN
     Dosage: INHALATIONAL
     Dates: start: 20210528

REACTIONS (7)
  - Pulmonary embolism [Fatal]
  - Decreased appetite [Unknown]
  - Lethargy [Unknown]
  - Chest pain [Unknown]
  - Hypertension [Fatal]
  - Small cell lung cancer [Fatal]
  - Thrombocytosis [Fatal]
